FAERS Safety Report 16878814 (Version 3)
Quarter: 2019Q4

REPORT INFORMATION
  Report Type: Spontaneous
  Country: GR (occurrence: GR)
  Receive Date: 20191002
  Receipt Date: 20191211
  Transmission Date: 20200122
  Serious: Yes (Hospitalization)
  Sender: FDA-Public Use
  Company Number: GR-ALLERGAN-1940152US

PATIENT
  Sex: Female

DRUGS (2)
  1. CICLOSPORIN [Suspect]
     Active Substance: CYCLOSPORINE
     Indication: COLITIS ULCERATIVE
     Route: 065
  2. MESALAZINE UNK [Suspect]
     Active Substance: MESALAMINE
     Indication: COLITIS ULCERATIVE
     Dosage: UNK
     Route: 065

REACTIONS (3)
  - Amniotic cavity infection [Recovered/Resolved]
  - Colitis ulcerative [Unknown]
  - Pregnancy [Unknown]
